FAERS Safety Report 7374987-1 (Version None)
Quarter: 2011Q1

REPORT INFORMATION
  Report Type: 
  Country: None (occurrence: None)
  Receive Date: 20110325
  Receipt Date: 20110314
  Transmission Date: 20110831
  Serious: Yes (Other)
  Sender: FDA-Public Use
  Company Number: PHFR2010IE06003

PATIENT
  Sex: Male

DRUGS (3)
  1. MOVIPREP [Concomitant]
     Dosage: 1 DF, QD
     Route: 048
  2. LIPITOR [Concomitant]
     Dosage: 10 MG, QD
  3. CLOZARIL [Suspect]
     Indication: SCHIZOPHRENIA
     Dosage: 500 MG, QD
     Route: 048
     Dates: start: 20021025, end: 20110202

REACTIONS (9)
  - POLYCYTHAEMIA [None]
  - WHITE BLOOD CELL COUNT DECREASED [None]
  - GENERAL PHYSICAL HEALTH DETERIORATION [None]
  - NEUTROPHIL COUNT DECREASED [None]
  - BLOOD ALKALINE PHOSPHATASE INCREASED [None]
  - CONSTIPATION [None]
  - HAEMORRHOIDS [None]
  - SOMNOLENCE [None]
  - BODY TEMPERATURE INCREASED [None]
